FAERS Safety Report 19436680 (Version 1)
Quarter: 2021Q2

REPORT INFORMATION
  Report Type: Report from Study
  Country: US (occurrence: US)
  Receive Date: 20210618
  Receipt Date: 20210618
  Transmission Date: 20210717
  Serious: Yes (Hospitalization, Other)
  Sender: FDA-Public Use
  Company Number: US-ELI_LILLY_AND_COMPANY-US202103014771

PATIENT
  Sex: Female

DRUGS (2)
  1. TRULICITY [Suspect]
     Active Substance: DULAGLUTIDE
     Indication: WEIGHT INCREASED
  2. TRULICITY [Suspect]
     Active Substance: DULAGLUTIDE
     Indication: DIABETES MELLITUS
     Dosage: 0.75 MG, UNKNOWN
     Route: 065
     Dates: start: 202011

REACTIONS (10)
  - Dehydration [Unknown]
  - Aggression [Unknown]
  - Visual impairment [Recovered/Resolved]
  - Anger [Unknown]
  - Decreased appetite [Unknown]
  - Diarrhoea [Unknown]
  - Hostility [Unknown]
  - Abdominal pain upper [Unknown]
  - Vomiting [Unknown]
  - Diabetic retinopathy [Unknown]
